FAERS Safety Report 8961905 (Version 2)
Quarter: 2013Q1

REPORT INFORMATION
  Report Type: Report from Study
  Country: US (occurrence: US)
  Receive Date: 20121212
  Receipt Date: 20130114
  Transmission Date: 20140127
  Serious: Yes (Hospitalization)
  Sender: FDA-Public Use
  Company Number: US-VERTEX PHARMACEUTICALS INC.-2012-025531

PATIENT
  Age: 58 Year
  Sex: Female
  Weight: 98.41 kg

DRUGS (10)
  1. VX-950 (TELAPREVIR) [Suspect]
     Indication: HEPATITIS C
     Dosage: 750 MG, TID
     Route: 048
     Dates: start: 20121101
  2. PEGASYS [Suspect]
     Indication: HEPATITIS C
     Dosage: 180 ?G, UNK
     Dates: start: 20121101
  3. RIBASPHERE [Suspect]
     Indication: HEPATITIS C
     Dosage: 1200 MG, QD
     Route: 048
     Dates: start: 20121101
  4. RIBASPHERE [Suspect]
     Dosage: 600 UNK, UNK
     Route: 048
  5. ZYRTEC [Concomitant]
     Dosage: 10 MG, QD
  6. OMEPRAZOLE [Concomitant]
     Dosage: 20 MG, QD
  7. ALBUTEROL                          /00139501/ [Concomitant]
     Dosage: 0.63MG/3
  8. PROAIR HFA [Concomitant]
  9. RANITIDINE [Concomitant]
     Dosage: 75 MG, UNK
     Route: 048
  10. ALLEGRA ALLERGY [Concomitant]
     Dosage: 60 MG, UNK
     Route: 048

REACTIONS (9)
  - Sinusitis [Unknown]
  - Nasal congestion [Unknown]
  - Dry mouth [Unknown]
  - Flatulence [Unknown]
  - Fatigue [Unknown]
  - Rash [Unknown]
  - Anaemia [Unknown]
  - Nausea [Unknown]
  - Dysgeusia [Unknown]
